FAERS Safety Report 5670139-1 (Version None)
Quarter: 2008Q1

REPORT INFORMATION
  Report Type: 
  Country: None (occurrence: None)
  Receive Date: 20080312
  Receipt Date: 20080225
  Transmission Date: 20080703
  Serious: Yes (Hospitalization)
  Sender: FDA-Public Use
  Company Number: 2008S1003629

PATIENT
  Age: 53 Year
  Sex: Female

DRUGS (1)
  1. IBUPROFEN [Suspect]
     Indication: DYSMENORRHOEA
     Dosage: 400 MG; 4 TIMES A DAY, ORAL
     Route: 048
     Dates: start: 20000901, end: 20080207

REACTIONS (2)
  - COLITIS ULCERATIVE [None]
  - PAIN [None]
